FAERS Safety Report 6753604 (Version 3)
Quarter: 2013Q1

REPORT INFORMATION
  Report Type: Spontaneous
  Country: IT (occurrence: IT)
  Receive Date: 20080911
  Receipt Date: 20130221
  Transmission Date: 20140127
  Serious: Yes (Hospitalization)
  Sender: FDA-Public Use
  Company Number: IT-ELI_LILLY_AND_COMPANY-IT200809000793

PATIENT
  Age: 66 Year
  Sex: Female

DRUGS (10)
  1. CYMBALTA [Suspect]
     Indication: DEPRESSION
     Dosage: 60 MG, DAILY (1/D)
     Route: 065
  2. CYMBALTA [Suspect]
     Dosage: 540 MG (NINE TABLETS, UNKNOWN
  3. TRAZODONE [Concomitant]
     Dosage: 75 MG, DAILY (1/D)
     Route: 065
  4. TRAZODONE [Concomitant]
     Dosage: 675 MG(NINE TABLETS), UNKNOWN
     Route: 065
  5. CLONAZEPAM [Concomitant]
     Dosage: UNK, AS NEEDED
     Route: 065
  6. CLONAZEPAM [Concomitant]
     Dosage: 0.125 MG, UNKNOWN
     Route: 065
  7. VENLAFAXINE [Concomitant]
     Indication: DEPRESSION
     Dosage: 75 MG, UNKNOWN
     Route: 065
  8. VENLAFAXINE [Concomitant]
     Dosage: UNK(OVERDOSE), UNKNOWN
     Route: 065
  9. SERTRALINE [Concomitant]
     Indication: DEPRESSION
     Dosage: 50 MG, UNKNOWN
     Route: 065
  10. SERTRALINE [Concomitant]
     Dosage: UNK(OVERDOSE), UNKNOWN
     Route: 065

REACTIONS (5)
  - Suicide attempt [Unknown]
  - Cardiovascular disorder [Unknown]
  - Mental disorder [Unknown]
  - Electrolyte imbalance [Unknown]
  - Intentional overdose [Unknown]
